FAERS Safety Report 16665678 (Version 1)
Quarter: 2019Q3

REPORT INFORMATION
  Report Type: Spontaneous
  Country: US (occurrence: US)
  Receive Date: 20190804
  Receipt Date: 20190804
  Transmission Date: 20191004
  Serious: No
  Sender: FDA-Public Use
  Company Number: US-ABBVIE-18S-163-2449298-00

PATIENT
  Age: 34 Year
  Sex: Female

DRUGS (1)
  1. DEPAKOTE [Suspect]
     Active Substance: DIVALPROEX SODIUM
     Indication: GENERALISED TONIC-CLONIC SEIZURE
     Route: 048
     Dates: start: 1995, end: 201802

REACTIONS (4)
  - Pancreatic disorder [Unknown]
  - Renal disorder [Unknown]
  - Exposure during pregnancy [Unknown]
  - Liver disorder [Unknown]
